FAERS Safety Report 25976897 (Version 1)
Quarter: 2025Q4

REPORT INFORMATION
  Report Type: Report from Study
  Country: CA (occurrence: CA)
  Receive Date: 20251030
  Receipt Date: 20251030
  Transmission Date: 20260117
  Serious: Yes (Other)
  Sender: ABBVIE
  Company Number: CA-ABBVIE-6523529

PATIENT
  Sex: Female

DRUGS (1)
  1. BOTOX [Suspect]
     Active Substance: ONABOTULINUMTOXINA
     Indication: Thoracic outlet syndrome
     Dosage: TIME INTERVAL: AS NECESSARY
     Route: 030
     Dates: start: 20240207, end: 20240207

REACTIONS (2)
  - Thoracic outlet syndrome [Unknown]
  - Product use in unapproved indication [Unknown]
